FAERS Safety Report 21101719 (Version 1)
Quarter: 2022Q3

REPORT INFORMATION
  Report Type: Spontaneous
  Country: US (occurrence: US)
  Receive Date: 20220719
  Receipt Date: 20220719
  Transmission Date: 20221027
  Serious: No
  Sender: FDA-Public Use
  Company Number: US-PFIZER INC-202200967045

PATIENT
  Age: 54 Year
  Sex: Female
  Weight: 72.57 kg

DRUGS (2)
  1. METHOTREXATE SODIUM [Suspect]
     Active Substance: METHOTREXATE SODIUM
     Indication: Rheumatoid arthritis
     Dosage: 2.5MG, 6 TABLETS BY MOUTH EVERY WEEK ON WEDNESDAY
     Route: 048
     Dates: start: 202205
  2. FOLIC ACID [Suspect]
     Active Substance: FOLIC ACID
     Indication: Rheumatoid arthritis
     Dosage: 1 MG, DAILY
     Dates: start: 202205

REACTIONS (1)
  - Malaise [Unknown]
